FAERS Safety Report 10072249 (Version 1)
Quarter: 2014Q2

REPORT INFORMATION
  Report Type: Spontaneous
  Country: FR (occurrence: FR)
  Receive Date: 20140411
  Receipt Date: 20140411
  Transmission Date: 20141212
  Serious: Yes (Hospitalization)
  Sender: FDA-Public Use
  Company Number: FR-009507513-1404FRA003423

PATIENT
  Age: 79 Year
  Sex: Female

DRUGS (8)
  1. JANUMET [Suspect]
     Indication: TYPE 2 DIABETES MELLITUS
     Dosage: 1 DF, BID
     Route: 048
  2. EXFORGE [Concomitant]
  3. BISOPROLOL FUMARATE [Concomitant]
  4. FUROSEMIDE [Concomitant]
  5. GLICLAZIDE [Concomitant]
  6. PRAVADUAL [Concomitant]
  7. MEDIATENSYL [Concomitant]
  8. LYRICA [Concomitant]

REACTIONS (2)
  - Anaemia [Recovering/Resolving]
  - Vitamin B12 decreased [Recovering/Resolving]
